FAERS Safety Report 6427608-6 (Version None)
Quarter: 2009Q4

REPORT INFORMATION
  Report Type: 
  Country: None (occurrence: None)
  Receive Date: 20091104
  Receipt Date: 20091021
  Transmission Date: 20100525
  Serious: Yes (Other)
  Sender: FDA-Public Use
  Company Number: GB-PFIZER INC-2009256734

PATIENT
  Age: 76 Year
  Sex: Male
  Weight: 77.5 kg

DRUGS (5)
  1. LYRICA [Suspect]
     Indication: NEURALGIA
     Dosage: 250 MG, 1X/DAY
     Route: 048
     Dates: start: 20090501, end: 20090805
  2. LYRICA [Suspect]
     Dosage: 25 MG, 1X/DAY
  3. FINASTERIDE [Concomitant]
     Indication: BENIGN PROSTATIC HYPERPLASIA
     Dosage: 5 MG, 1X/DAY
     Route: 048
  4. NEDOCROMIL [Concomitant]
     Indication: CONJUNCTIVITIS ALLERGIC
     Dosage: 1 DF, 2X/DAY
     Route: 047
  5. NORTRIPTYLINE [Concomitant]
     Indication: TRIGEMINAL NEURALGIA

REACTIONS (13)
  - ANXIETY [None]
  - BALANCE DISORDER [None]
  - DECREASED APPETITE [None]
  - DEPRESSION [None]
  - DIZZINESS [None]
  - FLUSHING [None]
  - HYPERHIDROSIS [None]
  - NAUSEA [None]
  - NERVOUSNESS [None]
  - PAIN [None]
  - SWELLING [None]
  - TENDON PAIN [None]
  - WITHDRAWAL SYNDROME [None]
